FAERS Safety Report 6087035-0 (Version None)
Quarter: 2009Q1

REPORT INFORMATION
  Report Type: 
  Country: None (occurrence: None)
  Receive Date: 20090223
  Receipt Date: 20090218
  Transmission Date: 20090719
  Serious: Yes (Other)
  Sender: FDA-Public Use
  Company Number: PHHY2009DE06006

PATIENT
  Sex: Female

DRUGS (4)
  1. RASILEZ [Suspect]
     Indication: HYPERTENSION
     Dosage: 150 MG/QD
     Dates: start: 20081101
  2. BRISERIN N [Concomitant]
     Indication: HYPERTENSION
  3. SIMVABETA [Concomitant]
     Dosage: 10 MG, QD
  4. ASPIRIN [Concomitant]
     Dosage: 1 DF, QD

REACTIONS (4)
  - BLOOD PRESSURE SYSTOLIC INCREASED [None]
  - DIARRHOEA [None]
  - DIZZINESS [None]
  - HEART RATE INCREASED [None]
